FAERS Safety Report 8348026-X (Version None)
Quarter: 2012Q2

REPORT INFORMATION
  Report Type: 
  Country: None (occurrence: None)
  Receive Date: 20120509
  Receipt Date: 20120502
  Transmission Date: 20120825
  Serious: Yes (Hospitalization)
  Sender: FDA-Public Use
  Company Number: US-ACTELION-A-NJ2012-62331

PATIENT

DRUGS (4)
  1. REVATIO [Concomitant]
  2. CALCIUM CHANNEL BLOCKERS [Concomitant]
  3. TRACLEER [Suspect]
     Indication: PULMONARY ARTERIAL HYPERTENSION
     Dosage: UNK
     Route: 048
     Dates: start: 20100121, end: 20120101
  4. TRACLEER [Suspect]
     Dosage: UNK
     Route: 048
     Dates: start: 20120101

REACTIONS (6)
  - CHRONIC RESPIRATORY FAILURE [None]
  - CARDIAC FAILURE CONGESTIVE [None]
  - SEPSIS [None]
  - LUNG DISORDER [None]
  - SARCOIDOSIS [None]
  - BLOOD LACTIC ACID INCREASED [None]
